FAERS Safety Report 5319749-1 (Version None)
Quarter: 2007Q2

REPORT INFORMATION
  Report Type: 
  Country: None (occurrence: None)
  Receive Date: 20070502
  Receipt Date: 20070416
  Transmission Date: 20071010
  Serious: Yes (Life-Threatening, Hospitalization)
  Sender: FDA-Public Use
  Company Number: DSA_29773_2007

PATIENT
  Sex: Female

DRUGS (2)
  1. TAVOR/00273201/(TAVOR) 1 DF [Suspect]
     Dosage: 2 DF 1X ORAL
     Route: 048
     Dates: start: 20070415, end: 20070415
  2. SEROQUEL [Suspect]
     Dosage: 30 DF 1X ORAL
     Route: 048
     Dates: start: 20070415, end: 20070415

REACTIONS (3)
  - MULTIPLE DRUG OVERDOSE [None]
  - SUICIDE ATTEMPT [None]
  - TACHYCARDIA [None]
